FAERS Safety Report 19174515 (Version 4)
Quarter: 2021Q3

REPORT INFORMATION
  Report Type: Spontaneous
  Country: GB (occurrence: GB)
  Receive Date: 20210423
  Receipt Date: 20210714
  Transmission Date: 20211014
  Serious: Yes (Other)
  Sender: FDA-Public Use
  Company Number: GB-TORRENT-00023723

PATIENT
  Sex: Female

DRUGS (4)
  1. ZUCLOPENTHIXOL [Suspect]
     Active Substance: ZUCLOPENTHIXOL
     Indication: SCHIZOAFFECTIVE DISORDER
     Dosage: UNKNOWN
     Route: 065
  2. OLANZAPINE. [Suspect]
     Active Substance: OLANZAPINE
     Indication: SCHIZOAFFECTIVE DISORDER
     Dosage: UNKNOWN
     Route: 065
  3. ARIPIPRAZOLE. [Suspect]
     Active Substance: ARIPIPRAZOLE
     Indication: SCHIZOAFFECTIVE DISORDER
     Dosage: UNKNOWN
     Route: 065
  4. ARIPIPRAZOLE. [Suspect]
     Active Substance: ARIPIPRAZOLE
     Indication: SCHIZOAFFECTIVE DISORDER
     Dosage: UNKNOWN
     Route: 065

REACTIONS (7)
  - Mean cell haemoglobin concentration decreased [Unknown]
  - Product use in unapproved indication [Unknown]
  - Drug resistance [Not Recovered/Not Resolved]
  - Schizoaffective disorder [Unknown]
  - Mean cell haemoglobin decreased [Unknown]
  - Monocyte count increased [Unknown]
  - Psychotic symptom [Unknown]

NARRATIVE: CASE EVENT DATE: 20200507
